FAERS Safety Report 6440006-4 (Version None)
Quarter: 2009Q4

REPORT INFORMATION
  Report Type: 
  Country: None (occurrence: None)
  Receive Date: 20091112
  Receipt Date: 20091112
  Transmission Date: 20100525
  Serious: Yes (Other)
  Sender: FDA-Public Use
  Company Number: None

PATIENT
  Age: 56 Year
  Sex: Male
  Weight: 97.7 kg

DRUGS (4)
  1. SILDENAFIL CITRATE [Suspect]
     Indication: ERECTILE DYSFUNCTION
     Dosage: 50MG DAILY PRN PO
     Route: 048
     Dates: start: 20081108
  2. SILDENAFIL CITRATE [Suspect]
     Indication: ERECTILE DYSFUNCTION
     Dosage: 50MG DAILY PRN PO
     Route: 048
     Dates: start: 20081130
  3. SILDENAFIL CITRATE [Suspect]
     Indication: ERECTILE DYSFUNCTION
     Dosage: 50MG DAILY PRN PO
     Route: 048
     Dates: start: 20081207
  4. SILDENAFIL CITRATE [Suspect]
     Indication: ERECTILE DYSFUNCTION
     Dosage: 50MG DAILY PRN PO
     Route: 048
     Dates: start: 20081211

REACTIONS (1)
  - CHORIORETINOPATHY [None]
